FAERS Safety Report 9009741 (Version 2)
Quarter: 2013Q3

REPORT INFORMATION
  Report Type: Spontaneous
  Country: FR (occurrence: FR)
  Receive Date: 20130110
  Receipt Date: 20130911
  Transmission Date: 20140515
  Serious: Yes (Hospitalization, Other)
  Sender: FDA-Public Use
  Company Number: FR-UCBSA-074513

PATIENT
  Age: 53 Year
  Sex: Female

DRUGS (5)
  1. CIMZIA [Suspect]
     Indication: ANKYLOSING SPONDYLITIS
     Dates: start: 20101104
  2. CIMZIA [Suspect]
     Indication: ANKYLOSING SPONDYLITIS
     Dates: start: 201102, end: 20120502
  3. ENBREL [Suspect]
     Indication: ANKYLOSING SPONDYLITIS
     Dates: start: 201006, end: 201010
  4. SALAZOPYRINE [Suspect]
     Indication: ANKYLOSING SPONDYLITIS
     Dates: start: 200804
  5. SALAZOPYRINE [Suspect]
     Indication: ANKYLOSING SPONDYLITIS
     Dates: start: 201102, end: 201204

REACTIONS (2)
  - Pulmonary mass [Not Recovered/Not Resolved]
  - Sarcoidosis [Not Recovered/Not Resolved]
